FAERS Safety Report 5042894-5 (Version None)
Quarter: 2006Q3

REPORT INFORMATION
  Report Type: 
  Country: None (occurrence: None)
  Receive Date: 20060705
  Receipt Date: 20060701
  Transmission Date: 20061208
  Serious: Yes (Other)
  Sender: FDA-Public Use
  Company Number: 2006012023

PATIENT
  Age: 17 Year
  Sex: Female

DRUGS (1)
  1. TAGONIS [Suspect]
     Dosage: 5TAB SINGLE DOSE
     Route: 048

REACTIONS (3)
  - INTENTIONAL OVERDOSE [None]
  - NO ADVERSE EFFECT [None]
  - SUICIDE ATTEMPT [None]
